FAERS Safety Report 5566190-2 (Version None)
Quarter: 2007Q4

REPORT INFORMATION
  Report Type: 
  Country: None (occurrence: None)
  Receive Date: 20071219
  Receipt Date: 20070615
  Transmission Date: 20080405
  Serious: No
  Sender: FDA-Public Use
  Company Number: US-KINGPHARMUSA00001-K200700755

PATIENT

DRUGS (2)
  1. APLISOL [Suspect]
     Indication: TUBERCULIN TEST
     Dosage: UNK, SINGLE
     Route: 023
     Dates: start: 20060601
  2. APLISOL [Suspect]
     Dosage: UNK, SINGLE
     Route: 023
     Dates: start: 20060601

REACTIONS (6)
  - INJECTION SITE ERYTHEMA [None]
  - INJECTION SITE INDURATION [None]
  - INJECTION SITE PRURITUS [None]
  - INJECTION SITE SCAR [None]
  - INJECTION SITE VESICLES [None]
  - THYROID DISORDER [None]
